FAERS Safety Report 7408496-8 (Version None)
Quarter: 2011Q1

REPORT INFORMATION
  Report Type: 
  Country: None (occurrence: None)
  Receive Date: 20110301
  Receipt Date: 20101203
  Transmission Date: 20110831
  Serious: Yes (Hospitalization)
  Sender: FDA-Public Use
  Company Number: US-JNJFOC-20101204278

PATIENT
  Age: 74 Year
  Sex: Male
  Weight: 99.7913 kg

DRUGS (2)
  1. IBUPROFEN TABLETS [Suspect]
     Indication: ARTHRITIS
     Dosage: 800 TO 1200 MG EVERY DAY FOR 1-2 YEARS
  2. ASPIRIN [Suspect]
     Indication: ARTHRITIS
     Dosage: 325 MG

REACTIONS (2)
  - GASTRIC PERFORATION [None]
  - GASTROINTESTINAL HAEMORRHAGE [None]
